FAERS Safety Report 4820796-4 (Version None)
Quarter: 2005Q4

REPORT INFORMATION
  Report Type: 
  Country: None (occurrence: None)
  Receive Date: 20051104
  Receipt Date: 20051025
  Transmission Date: 20060501
  Serious: Yes (Hospitalization)
  Sender: FDA-Public Use
  Company Number: US-JNJFOC-20051005393

PATIENT
  Age: 13 Year
  Sex: Male

DRUGS (1)
  1. TOPIRAMATE [Suspect]
     Indication: INTENTIONAL DRUG MISUSE
     Dosage: TOOK (FOUR 100 MG TABLETS=400 MG) AT ONE TIME
     Route: 048

REACTIONS (2)
  - INTENTIONAL DRUG MISUSE [None]
  - MENTAL STATUS CHANGES [None]
